FAERS Safety Report 6214993-3 (Version None)
Quarter: 2009Q2

REPORT INFORMATION
  Report Type: 
  Country: None (occurrence: None)
  Receive Date: 20090604
  Receipt Date: 20080520
  Transmission Date: 20091009
  Serious: No
  Sender: FDA-Public Use
  Company Number: US-ASTRAZENECA-2008UW10378

PATIENT
  Age: 71 Year
  Sex: Female
  Weight: 51.3 kg

DRUGS (5)
  1. PRILOSEC [Suspect]
     Indication: GASTROOESOPHAGEAL REFLUX DISEASE
     Route: 048
     Dates: start: 20010101, end: 20080201
  2. PREMARIN [Concomitant]
     Dosage: .3 QOD
  3. LORAZEPAM [Concomitant]
  4. CALCIUM WITH VITAMIN D [Concomitant]
  5. METOPROLOL SUCCINATE [Concomitant]

REACTIONS (2)
  - ABDOMINAL DISCOMFORT [None]
  - DRUG INEFFECTIVE [None]
